FAERS Safety Report 13942417 (Version 1)
Quarter: 2017Q3

REPORT INFORMATION
  Report Type: Spontaneous
  Country: PT (occurrence: PT)
  Receive Date: 20170906
  Receipt Date: 20170906
  Transmission Date: 20171127
  Serious: Yes (Congenital Anomaly, Other)
  Sender: FDA-Public Use
  Company Number: PT-ABBVIE-16P-130-1825227-00

PATIENT
  Sex: Male

DRUGS (2)
  1. SODIUM VALPROATE [Suspect]
     Active Substance: VALPROATE SODIUM
     Indication: MATERNAL EXPOSURE TIMING UNSPECIFIED
     Route: 064
  2. FOLIC ACID. [Suspect]
     Active Substance: FOLIC ACID
     Indication: MATERNAL EXPOSURE TIMING UNSPECIFIED
     Route: 064

REACTIONS (21)
  - Enuresis [Unknown]
  - Cognitive disorder [Unknown]
  - Congenital anomaly [Unknown]
  - Otitis media [Unknown]
  - Speech disorder developmental [Unknown]
  - Nipple disorder [Unknown]
  - Developmental delay [Unknown]
  - Abnormal behaviour [Unknown]
  - Hypoxic-ischaemic encephalopathy [Unknown]
  - Congenital pyelocaliectasis [Unknown]
  - Hypoacusis [Unknown]
  - Attention deficit/hyperactivity disorder [Unknown]
  - Foetal exposure during pregnancy [Unknown]
  - Nose deformity [Unknown]
  - Separation anxiety disorder [Unknown]
  - Fat tissue increased [Unknown]
  - Learning disability [Unknown]
  - Cryptorchism [Recovered/Resolved]
  - Dysmorphism [Unknown]
  - Atrial septal defect [Unknown]
  - Encephalomalacia [Unknown]
